FAERS Safety Report 25480167 (Version 1)
Quarter: 2025Q2

REPORT INFORMATION
  Report Type: Spontaneous
  Country: TR (occurrence: TR)
  Receive Date: 20250625
  Receipt Date: 20250625
  Transmission Date: 20250716
  Serious: Yes (Hospitalization, Other)
  Sender: NOVARTIS
  Company Number: TR-002147023-NVSC2025TR099431

PATIENT
  Age: 8 Year
  Sex: Female

DRUGS (2)
  1. TAFINLAR [Suspect]
     Active Substance: DABRAFENIB MESYLATE
     Indication: Glioma
     Route: 065
  2. MEKINIST [Suspect]
     Active Substance: TRAMETINIB DIMETHYL SULFOXIDE
     Indication: Glioma
     Route: 065

REACTIONS (4)
  - Pelvic pain [Unknown]
  - Gait disturbance [Unknown]
  - Rash [Unknown]
  - Pyrexia [Unknown]
